FAERS Safety Report 17565776 (Version 1)
Quarter: 2020Q1

REPORT INFORMATION
  Report Type: Spontaneous
  Country: US (occurrence: US)
  Receive Date: 20200302
  Receipt Date: 20200302
  Transmission Date: 20200409
  Serious: Yes (Hospitalization)
  Sender: FDA-Public Use
  Company Number: None

PATIENT
  Age: 70 Year
  Sex: Female
  Weight: 74.84 kg

DRUGS (14)
  1. MEAPROLOL XL [Concomitant]
  2. EPIPEN [Concomitant]
     Active Substance: EPINEPHRINE
  3. ALPRAZOLAM. [Concomitant]
     Active Substance: ALPRAZOLAM
  4. NASOCORT [Concomitant]
     Active Substance: BUDESONIDE
  5. ALBUTEROL INHALER [Concomitant]
     Active Substance: ALBUTEROL
  6. CYANOCOBALAMIN. [Concomitant]
     Active Substance: CYANOCOBALAMIN
  7. DONEPEZIL. [Concomitant]
     Active Substance: DONEPEZIL
  8. PAROXETINE. [Concomitant]
     Active Substance: PAROXETINE
  9. GLIMEPIRIDE. [Suspect]
     Active Substance: GLIMEPIRIDE
     Indication: DIABETES MELLITUS
     Dosage: ?          QUANTITY:1/DAY;OTHER FREQUENCY:1 IN AM;?
     Route: 048
     Dates: start: 20200131, end: 20200218
  10. ENALAPRIL [Concomitant]
     Active Substance: ENALAPRIL
  11. FISH OIL [Suspect]
     Active Substance: FISH OIL
  12. MULTIVITAMIN [Concomitant]
     Active Substance: VITAMINS
  13. METFORMIN [Suspect]
     Active Substance: METFORMIN HYDROCHLORIDE
  14. ASA LOW DOSE [Concomitant]

REACTIONS (2)
  - Diarrhoea [None]
  - Blood glucose decreased [None]

NARRATIVE: CASE EVENT DATE: 20200215
